FAERS Safety Report 24773017 (Version 3)
Quarter: 2025Q1

REPORT INFORMATION
  Report Type: Report from Study
  Country: US (occurrence: US)
  Receive Date: 20241225
  Receipt Date: 20250307
  Transmission Date: 20250408
  Serious: Yes (Hospitalization)
  Sender: ROCHE
  Company Number: US-ROCHE-10000104463

PATIENT
  Age: 27 Year
  Sex: Female
  Weight: 106.14 kg

DRUGS (3)
  1. OCREVUS [Suspect]
     Active Substance: OCRELIZUMAB
     Indication: Relapsing-remitting multiple sclerosis
     Dosage: THERAPY: ONGOING: NO?600MG EVERY 6 MONTHS .?LAST INFUSION ON  11-DEC-2023
     Route: 042
     Dates: start: 20230524
  2. OCREVUS [Suspect]
     Active Substance: OCRELIZUMAB
     Dosage: THERAPY: ONGOING: NO?600MG EVERY 6 MONTHS .
     Route: 042
     Dates: start: 20230623, end: 20231211
  3. KESIMPTA [Concomitant]
     Active Substance: OFATUMUMAB

REACTIONS (4)
  - Maternal exposure before pregnancy [Unknown]
  - Off label use [Unknown]
  - Bradycardia [Recovered/Resolved]
  - Throat irritation [Unknown]

NARRATIVE: CASE EVENT DATE: 20241202
